FAERS Safety Report 5355211-8 (Version None)
Quarter: 2007Q2

REPORT INFORMATION
  Report Type: 
  Country: None (occurrence: None)
  Receive Date: 20070611
  Receipt Date: 20070524
  Transmission Date: 20071010
  Serious: Yes (Death, Hospitalization)
  Sender: FDA-Public Use
  Company Number: 2007BM000061

PATIENT
  Age: 40 Year
  Sex: Female

DRUGS (2)
  1. PREDNISOLONE [Suspect]
     Indication: SYSTEMIC LUPUS ERYTHEMATOSUS
     Dosage: SEE IMAGE
  2. ORAPRED [Suspect]

REACTIONS (5)
  - CARDIAC ARREST [None]
  - LOSS OF CONSCIOUSNESS [None]
  - MENINGITIS CRYPTOCOCCAL [None]
  - PSYCHOTIC DISORDER [None]
  - SYSTEMIC LUPUS ERYTHEMATOSUS [None]
